FAERS Safety Report 8732033 (Version 4)
Quarter: 2012Q4

REPORT INFORMATION
  Report Type: 
  Country: CA (occurrence: CA)
  Receive Date: 20120820
  Receipt Date: 20121129
  Transmission Date: 20130627
  Serious: Yes (Life-Threatening, Hospitalization, Disabling, Other)
  Sender: FDA-Public Use
  Company Number: CA-BAYER-2012-083273

PATIENT
  Age: 44 Year
  Sex: Female

DRUGS (3)
  1. MIRENA [Suspect]
     Indication: HEAVY PERIODS
     Dosage: 20 mcg/24hr, CONT
     Route: 015
     Dates: start: 20120530
  2. MIRENA [Suspect]
     Indication: ANEMIA
  3. IRON [Concomitant]

REACTIONS (2)
  - Embolism venous [Recovered/Resolved]
  - Adenocarcinoma gastric [None]
